FAERS Safety Report 4320207-1 (Version None)
Quarter: 2004Q1

REPORT INFORMATION
  Report Type: 
  Country: None (occurrence: None)
  Receive Date: 20040317
  Receipt Date: 20040304
  Transmission Date: 20041129
  Serious: Yes (Other)
  Sender: FDA-Public Use
  Company Number: 2004002747

PATIENT
  Age: 25 Year
  Sex: Female
  Weight: 75 kg

DRUGS (6)
  1. ATARAX [Suspect]
     Indication: SEDATION
     Dosage: UNKNOWN
     Route: 065
  2. DIPYRONE INJ [Suspect]
     Indication: ILL-DEFINED DISORDER
     Dosage: UNKNOWN
     Route: 065
  3. CEFAZOLIN SODIUM [Suspect]
     Indication: ILL-DEFINED DISORDER
     Dosage: INTRAVENOUS
     Route: 042
  4. MINOCYCLINE HYDROCHLORIDE [Suspect]
     Indication: ILL-DEFINED DISORDER
     Dosage: UNKNOWN
     Route: 065
  5. OSELTAMIVIR (OSELTAMIVIR) [Concomitant]
  6. ACETAMINOPHEN [Concomitant]

REACTIONS (2)
  - CONVERSION DISORDER [None]
  - SYNCOPE [None]
